FAERS Safety Report 4653773-7 (Version None)
Quarter: 2005Q2

REPORT INFORMATION
  Report Type: 
  Country: None (occurrence: None)
  Receive Date: 20050504
  Receipt Date: 20050421
  Transmission Date: 20051028
  Serious: Yes (Hospitalization, Other)
  Sender: FDA-Public Use
  Company Number: 2005065353

PATIENT
  Age: 63 Year
  Sex: Male
  Weight: 113.3993 kg

DRUGS (5)
  1. BEXTRA [Suspect]
     Indication: ARTHRALGIA
     Dosage: 20 MG (1 IN 1 D), ORAL
     Route: 048
     Dates: end: 20040801
  2. ASPIRIN [Suspect]
     Indication: ILL-DEFINED DISORDER
     Dosage: 81 MG, ORAL
     Route: 048
  3. ATENOLOL [Concomitant]
  4. THYROID TAB [Concomitant]
  5. ALPRAZOLAM [Concomitant]

REACTIONS (5)
  - ARTHRALGIA [None]
  - BACK PAIN [None]
  - KNEE ARTHROPLASTY [None]
  - PAIN [None]
  - TINNITUS [None]
